FAERS Safety Report 6051764-5 (Version None)
Quarter: 2009Q1

REPORT INFORMATION
  Report Type: 
  Country: None (occurrence: None)
  Receive Date: 20090126
  Receipt Date: 20090108
  Transmission Date: 20090719
  Serious: Yes (Hospitalization, Other)
  Sender: FDA-Public Use
  Company Number: US-PFIZER INC-2008099055

PATIENT
  Sex: Male
  Weight: 115.19 kg

DRUGS (1)
  1. LIPITOR [Suspect]
     Indication: HYPERCHOLESTEROLAEMIA
     Dosage: 10 MG, 1X/DAY

REACTIONS (4)
  - ARTHRALGIA [None]
  - LOW DENSITY LIPOPROTEIN ABNORMAL [None]
  - MUSCLE INJURY [None]
  - PAIN IN EXTREMITY [None]
